FAERS Safety Report 19706988 (Version 1)
Quarter: 2021Q3

REPORT INFORMATION
  Report Type: Spontaneous
  Country: US (occurrence: US)
  Receive Date: 20210816
  Receipt Date: 20210816
  Transmission Date: 20211014
  Serious: No
  Sender: FDA-Public Use
  Company Number: None

PATIENT
  Age: 57 Year
  Sex: Male
  Weight: 108 kg

DRUGS (2)
  1. CIPROFLOXACIN (CIPROFLOXACIN HCL 750MG TAB) [Suspect]
     Active Substance: CIPROFLOXACIN HYDROCHLORIDE
     Indication: LOCALISED INFECTION
     Dosage: ?          OTHER DOSE:1 TAB ;?
     Route: 048
     Dates: start: 20210624, end: 20210712
  2. METFORMIN (METFORMIN HCL 1000MG TAB) [Suspect]
     Active Substance: METFORMIN HYDROCHLORIDE
     Indication: DIABETES MELLITUS
     Dosage: ?          OTHER DOSE:1 TAB;?
     Route: 048
     Dates: start: 20210604, end: 20210708

REACTIONS (2)
  - Tubulointerstitial nephritis [None]
  - Lactic acidosis [None]

NARRATIVE: CASE EVENT DATE: 20210708
